FAERS Safety Report 9723187 (Version 1)
Quarter: 2013Q4

REPORT INFORMATION
  Report Type: Spontaneous
  Country: BR (occurrence: None)
  Receive Date: 20131126
  Receipt Date: 20131126
  Transmission Date: 20140711
  Serious: Yes (Other)
  Sender: FDA-Public Use
  Company Number: DSJ-2013-25600

PATIENT
  Sex: Female
  Weight: 63 kg

DRUGS (1)
  1. BENICAR HCT [Suspect]
     Indication: HYPERTENSION
     Dosage: 20/12.5 MG ( 1 IN 1 D), PER ORAL
     Route: 048
     Dates: start: 2011

REACTIONS (5)
  - Choking [None]
  - Vomiting [None]
  - Dyspnoea [None]
  - Throat tightness [None]
  - Nasal septum deviation [None]
